FAERS Safety Report 6620446-0 (Version None)
Quarter: 2010Q1

REPORT INFORMATION
  Report Type: 
  Country: None (occurrence: None)
  Receive Date: 20100309
  Receipt Date: 20100225
  Transmission Date: 20100710
  Serious: Yes (Hospitalization)
  Sender: FDA-Public Use
  Company Number: GB-ELI_LILLY_AND_COMPANY-GB201001001546

PATIENT
  Sex: Male

DRUGS (2)
  1. HUMALOG MIX 75/25 [Suspect]
     Indication: TYPE 2 DIABETES MELLITUS
     Dosage: 28/24
     Route: 058
     Dates: start: 20100108, end: 20100111
  2. HUMALOG MIX 75/25 [Suspect]
     Dosage: 24 U, EACH EVENING
     Route: 058
     Dates: start: 20100108, end: 20100101

REACTIONS (4)
  - HOSPITALISATION [None]
  - INJECTION SITE ERYTHEMA [None]
  - INJECTION SITE SWELLING [None]
  - INJECTION SITE WARMTH [None]
